FAERS Safety Report 9312599 (Version 1)
Quarter: 2013Q2

REPORT INFORMATION
  Report Type: Spontaneous
  Country: US (occurrence: US)
  Receive Date: 20130528
  Receipt Date: 20130528
  Transmission Date: 20140414
  Serious: Yes (Hospitalization)
  Sender: FDA-Public Use
  Company Number: US-GLAXOSMITHKLINE-A1024785A

PATIENT
  Age: 44 Year
  Sex: Male
  Weight: 56.8 kg

DRUGS (1)
  1. PROMACTA [Suspect]
     Indication: IDIOPATHIC THROMBOCYTOPENIC PURPURA
     Dosage: 25MG PER DAY
     Route: 048
     Dates: start: 20130109

REACTIONS (8)
  - Pulmonary fibrosis [Unknown]
  - Delirium [Unknown]
  - Infection [Unknown]
  - Dyspnoea [Unknown]
  - Pulmonary function test decreased [Unknown]
  - Nosocomial infection [Unknown]
  - Weight decreased [Unknown]
  - Osteoporosis [Unknown]
